FAERS Safety Report 17930843 (Version 1)
Quarter: 2020Q2

REPORT INFORMATION
  Report Type: Spontaneous
  Country: US (occurrence: US)
  Receive Date: 20200623
  Receipt Date: 20200623
  Transmission Date: 20200714
  Serious: No
  Sender: FDA-Public Use
  Company Number: US-009507513-2006USA008077

PATIENT
  Sex: Female

DRUGS (1)
  1. NEXPLANON [Suspect]
     Active Substance: ETONOGESTREL
     Dosage: A NUMBER OF YEARS AGO, NON PALPABLE NEXPLANON
     Route: 059

REACTIONS (3)
  - Incorrect product administration duration [Unknown]
  - Complication associated with device [Unknown]
  - Circumstance or information capable of leading to medication error [Unknown]
